FAERS Safety Report 19880734 (Version 2)
Quarter: 2021Q4

REPORT INFORMATION
  Report Type: Spontaneous
  Country: FR (occurrence: FR)
  Receive Date: 20210924
  Receipt Date: 20211008
  Transmission Date: 20220303
  Serious: Yes (Other)
  Sender: FDA-Public Use
  Company Number: FR-FRESENIUS KABI-FK202109028

PATIENT
  Age: 48 Year
  Sex: Female

DRUGS (14)
  1. TRASTUZUMAB [Suspect]
     Active Substance: TRASTUZUMAB
     Indication: Breast cancer
     Dosage: UNK
     Route: 065
     Dates: start: 20210525
  2. TRASTUZUMAB [Suspect]
     Active Substance: TRASTUZUMAB
     Dosage: 378 MILLIGRAM
     Route: 065
     Dates: start: 20210706
  3. TRASTUZUMAB [Suspect]
     Active Substance: TRASTUZUMAB
     Dosage: UNK
     Route: 065
     Dates: start: 20210727
  4. CYTARABINE [Suspect]
     Active Substance: CYTARABINE
     Indication: Breast cancer
     Dosage: UNK
     Route: 065
     Dates: start: 20210202
  5. EPIRUBICIN [Suspect]
     Active Substance: EPIRUBICIN
     Indication: Breast cancer
     Dosage: UNK
     Route: 065
     Dates: start: 20210202
  6. PACLITAXEL [Suspect]
     Active Substance: PACLITAXEL
     Indication: Breast cancer
     Dosage: 100MG/16.7ML
     Route: 065
     Dates: start: 20210202
  7. PACLITAXEL [Suspect]
     Active Substance: PACLITAXEL
     Dosage: 138 MILLIGRAM, QWK (100MG/16.7ML CURE 1 DAY 1)
     Route: 041
     Dates: start: 20210525
  8. PACLITAXEL [Suspect]
     Active Substance: PACLITAXEL
     Dosage: 138 MILLIGRAM
     Route: 065
     Dates: start: 20210622
  9. PACLITAXEL [Suspect]
     Active Substance: PACLITAXEL
     Dosage: 138 MILLIGRAM, QWK
     Route: 041
     Dates: start: 20210706
  10. PACLITAXEL [Suspect]
     Active Substance: PACLITAXEL
     Dosage: 138 MILLIGRAM
     Route: 065
     Dates: start: 20210713
  11. PACLITAXEL [Suspect]
     Active Substance: PACLITAXEL
     Dosage: 98.4 MILLIGRAM
     Route: 065
     Dates: start: 20210720, end: 20210727
  12. PERTUZUMAB [Suspect]
     Active Substance: PERTUZUMAB
     Indication: Breast cancer
     Dosage: UNK
     Route: 065
     Dates: start: 20210525
  13. PERTUZUMAB [Suspect]
     Active Substance: PERTUZUMAB
     Dosage: 420 MILLIGRAM
     Route: 065
     Dates: start: 20210706
  14. PERTUZUMAB [Suspect]
     Active Substance: PERTUZUMAB
     Dosage: UNK
     Route: 065
     Dates: start: 20210727

REACTIONS (10)
  - Skin abrasion [Unknown]
  - Oesophagitis [Unknown]
  - Conjunctivitis [Unknown]
  - Neuropathy peripheral [Not Recovered/Not Resolved]
  - Diarrhoea [Unknown]
  - Epistaxis [Recovered/Resolved]
  - Constipation [Unknown]
  - Oedema [Unknown]
  - Paraesthesia [Unknown]
  - Off label use [Unknown]

NARRATIVE: CASE EVENT DATE: 20210525
